FAERS Safety Report 9275539 (Version 2)
Quarter: 2013Q3

REPORT INFORMATION
  Report Type: Spontaneous
  Country: US (occurrence: US)
  Receive Date: 20130507
  Receipt Date: 20130701
  Transmission Date: 20140515
  Serious: No
  Sender: FDA-Public Use
  Company Number: US-PFIZER INC-2013141465

PATIENT
  Sex: Female

DRUGS (2)
  1. LIPITOR [Suspect]
     Dosage: UNK
  2. LIPITOR [Suspect]
     Dosage: UNK
     Dates: start: 2013

REACTIONS (6)
  - Gastrointestinal disorder [Unknown]
  - Bladder disorder [Unknown]
  - Hypoaesthesia [Unknown]
  - Fatigue [Unknown]
  - Amnesia [Unknown]
  - Abdominal discomfort [Unknown]
